FAERS Safety Report 21152666 (Version 1)
Quarter: 2022Q3

REPORT INFORMATION
  Report Type: Spontaneous
  Country: US (occurrence: US)
  Receive Date: 20220730
  Receipt Date: 20220730
  Transmission Date: 20221027
  Serious: Yes (Hospitalization)
  Sender: FDA-Public Use
  Company Number: US-SA-SAC20220726002167

PATIENT
  Age: 74 Year
  Sex: Female

DRUGS (27)
  1. OXALIPLATIN [Suspect]
     Active Substance: OXALIPLATIN
     Indication: Pancreatic carcinoma metastatic
     Dosage: DAY 1 AND DAY 15 (85 MG/M2,1 IN 2 WK)
     Route: 042
     Dates: start: 20211221, end: 20220223
  2. OXALIPLATIN [Suspect]
     Active Substance: OXALIPLATIN
     Dosage: 85 MG/M2,1 IN 2 WK
     Route: 042
     Dates: start: 20220406
  3. GILORALIMAB [Suspect]
     Active Substance: GILORALIMAB
     Indication: Pancreatic carcinoma metastatic
     Dosage: 0.3 MG/M2, Q4W
     Route: 042
     Dates: start: 20211223, end: 20220225
  4. GILORALIMAB [Suspect]
     Active Substance: GILORALIMAB
     Dosage: 0.3 MG/M2, Q4W
     Route: 042
     Dates: start: 20220429
  5. BUDIGALIMAB [Suspect]
     Active Substance: BUDIGALIMAB
     Indication: Pancreatic carcinoma metastatic
     Dosage: 500 MG, Q4W
     Route: 042
     Dates: start: 20211223, end: 20220225
  6. BUDIGALIMAB [Suspect]
     Active Substance: BUDIGALIMAB
     Dosage: 500 MG, Q4W
     Route: 042
     Dates: start: 20220429
  7. IRINOTECAN [Suspect]
     Active Substance: IRINOTECAN
     Indication: Pancreatic carcinoma metastatic
     Dosage: 256.5 MG, QOW
     Route: 042
     Dates: start: 20211221, end: 20220209
  8. IRINOTECAN [Suspect]
     Active Substance: IRINOTECAN
     Dosage: 190.8 MG, QOW
     Route: 042
     Dates: start: 20211223, end: 20220225
  9. IRINOTECAN [Suspect]
     Active Substance: IRINOTECAN
     Dosage: 190.8 MG, QOW
     Route: 042
     Dates: start: 20220406
  10. FLUOROURACIL [Suspect]
     Active Substance: FLUOROURACIL
     Indication: Pancreatic carcinoma metastatic
     Dosage: 4104 MG, QOW
     Route: 042
     Dates: start: 20211221, end: 20220209
  11. FLUOROURACIL [Suspect]
     Active Substance: FLUOROURACIL
     Dosage: 3816 MG, QOW
     Route: 042
     Dates: start: 20220223, end: 20220223
  12. FLUOROURACIL [Suspect]
     Active Substance: FLUOROURACIL
     Dosage: 3816 MG, QOW
     Route: 042
     Dates: start: 20220406
  13. VITAMIN D NOS [Concomitant]
     Active Substance: VITAMIN D NOS
     Indication: Vitamin D deficiency
     Dosage: 2000 IU, QD
     Route: 048
     Dates: start: 20150101
  14. DIPHENHYDRAMINE [Concomitant]
     Active Substance: DIPHENHYDRAMINE
     Indication: Pruritus
     Dosage: 50MG, AS REQUIRED
     Route: 048
     Dates: start: 20211217
  15. DIPHENHYDRAMINE [Concomitant]
     Active Substance: DIPHENHYDRAMINE
     Indication: Contrast media allergy
     Dosage: 50MG, AS REQUIRED
     Route: 048
     Dates: start: 20220104
  16. PREDNISONE [Concomitant]
     Active Substance: PREDNISONE
     Indication: Contrast media allergy
     Dosage: 50MG, AS REQUIRED
     Route: 048
     Dates: start: 20211216
  17. HYDROCORTISONE [Concomitant]
     Active Substance: HYDROCORTISONE
     Indication: Haemorrhoids
     Dosage: 2.5%, AS REQUIRED
     Route: 061
     Dates: start: 20180725
  18. LIDOCAINE [Concomitant]
     Active Substance: LIDOCAINE
     Indication: Haemorrhoids
     Dosage: 4%, AS REQUIRED
     Route: 061
     Dates: start: 20170101
  19. CAMPHOR [Concomitant]
     Active Substance: CAMPHOR
     Indication: Herpes virus infection
     Dosage: 1APPLICATION, ASREQUIRED
     Route: 061
     Dates: start: 20211226
  20. CAMPHOR [Concomitant]
     Active Substance: CAMPHOR
     Indication: Lip dry
  21. FLUCONAZOLE [Concomitant]
     Active Substance: FLUCONAZOLE
     Indication: Vaginal infection
     Dosage: 150MG, ONCE
     Route: 048
     Dates: start: 20220207
  22. PETROLATUM [Concomitant]
     Active Substance: PETROLATUM
     Indication: Dry skin
     Dosage: 14%, AS REQUIRED
     Route: 061
     Dates: start: 20220207
  23. VITAMIN B12 [Concomitant]
     Active Substance: CYANOCOBALAMIN
     Indication: Nutritional supplementation
     Dosage: 2000 IU, QD
     Route: 048
     Dates: start: 20150101
  24. ZINC [Concomitant]
     Active Substance: ZINC
     Indication: Nutritional supplementation
     Dosage: 50MG,1IN1D
     Route: 048
     Dates: start: 20150101
  25. VITAMIN C [Concomitant]
     Active Substance: ASCORBIC ACID
     Indication: Nutritional supplementation
     Dosage: 1000 MG, QD
     Route: 048
     Dates: start: 20150101
  26. COD LIVER OIL [Concomitant]
     Active Substance: COD LIVER OIL
     Indication: Nutritional supplementation
     Dosage: 1000 MG, QD
     Route: 048
     Dates: start: 20150101
  27. IMODIUM [Concomitant]
     Active Substance: LOPERAMIDE HYDROCHLORIDE
     Indication: Diarrhoea
     Dosage: (2 MG,1 IN 1 AS REQUIRED)
     Route: 048
     Dates: start: 20220215

REACTIONS (3)
  - Anaemia [Recovered/Resolved]
  - Vomiting [Recovered/Resolved]
  - Dehydration [Recovered/Resolved]

NARRATIVE: CASE EVENT DATE: 20220307
